FAERS Safety Report 7930850-6 (Version None)
Quarter: 2011Q4

REPORT INFORMATION
  Report Type: 
  Country: None (occurrence: None)
  Receive Date: 20111108
  Receipt Date: 20101004
  Transmission Date: 20120403
  Serious: Yes (Other)
  Sender: FDA-Public Use
  Company Number: PHHY2010US66059

PATIENT
  Age: 60 Year
  Sex: Female

DRUGS (4)
  1. DLIGLIDIZIDE [Concomitant]
  2. METFORMIN HCL [Concomitant]
  3. ZOMETA [Suspect]
     Dosage: INFUSION
     Dates: start: 20100930
  4. DIOVAN [Concomitant]

REACTIONS (1)
  - BACK PAIN [None]
